FAERS Safety Report 21925613 (Version 7)
Quarter: 2023Q4

REPORT INFORMATION
  Report Type: Spontaneous
  Country: US (occurrence: US)
  Receive Date: 20230130
  Receipt Date: 20231011
  Transmission Date: 20240109
  Serious: No
  Sender: FDA-Public Use
  Company Number: US-002147023-NVSC2023US017780

PATIENT
  Sex: Female

DRUGS (2)
  1. TRAVATAN Z [Suspect]
     Active Substance: TRAVOPROST
     Indication: Product used for unknown indication
     Dosage: 2.5 ML
     Route: 047
  2. TRAVATAN Z [Suspect]
     Active Substance: TRAVOPROST
     Dosage: UNK (CONSUMER STATED THAT SHE OPENED IT ON MAY 20TH AND STOPPED USING IT ON JUNE 6TH)
     Route: 065

REACTIONS (3)
  - Eye irritation [Unknown]
  - Product leakage [Unknown]
  - Product quality issue [Unknown]
